FAERS Safety Report 25201129 (Version 1)
Quarter: 2025Q2

REPORT INFORMATION
  Report Type: Spontaneous
  Country: CN (occurrence: CN)
  Receive Date: 20250416
  Receipt Date: 20250416
  Transmission Date: 20250717
  Serious: Yes (Other)
  Sender: JOHNSON AND JOHNSON
  Company Number: CN-JNJFOC-20250404743

PATIENT

DRUGS (11)
  1. RISPERIDONE [Suspect]
     Active Substance: RISPERIDONE
     Indication: Product used for unknown indication
  2. RISPERIDONE [Suspect]
     Active Substance: RISPERIDONE
  3. RISPERIDONE [Suspect]
     Active Substance: RISPERIDONE
  4. RISPERIDONE [Suspect]
     Active Substance: RISPERIDONE
  5. RISPERIDONE [Suspect]
     Active Substance: RISPERIDONE
  6. RISPERIDONE [Suspect]
     Active Substance: RISPERIDONE
  7. PALIPERIDONE [Suspect]
     Active Substance: PALIPERIDONE
     Indication: Product used for unknown indication
     Route: 065
  8. OLANZAPINE [Suspect]
     Active Substance: OLANZAPINE
     Indication: Product used for unknown indication
     Route: 065
  9. QUETIAPINE [Suspect]
     Active Substance: QUETIAPINE
     Indication: Product used for unknown indication
     Route: 065
  10. ARIPIPRAZOLE [Suspect]
     Active Substance: ARIPIPRAZOLE
     Indication: Product used for unknown indication
     Route: 065
  11. CLOZAPINE [Suspect]
     Active Substance: CLOZAPINE
     Indication: Product used for unknown indication
     Route: 065

REACTIONS (51)
  - Delirium [Unknown]
  - Arrhythmia [Unknown]
  - Electrocardiogram QT prolonged [Unknown]
  - Intestinal obstruction [Unknown]
  - Hypokalaemia [Unknown]
  - Urinary retention [Unknown]
  - Erythema multiforme [Unknown]
  - Extrapyramidal disorder [Unknown]
  - Somnolence [Unknown]
  - Dizziness [Unknown]
  - Asthenia [Unknown]
  - Sedation complication [Unknown]
  - Paraesthesia [Unknown]
  - Restlessness [Unknown]
  - Lethargy [Unknown]
  - Headache [Unknown]
  - Vertigo [Unknown]
  - Sinus tachycardia [Unknown]
  - Orthostatic hypotension [Unknown]
  - Palpitations [Unknown]
  - Sinus bradycardia [Unknown]
  - Electrocardiogram abnormal [Unknown]
  - Atrioventricular block [Unknown]
  - Atrial tachycardia [Unknown]
  - Hypertension [Unknown]
  - Unevaluable event [Unknown]
  - Constipation [Unknown]
  - Hepatic function abnormal [Unknown]
  - Gastrointestinal disorder [Unknown]
  - Increased appetite [Unknown]
  - Nausea [Unknown]
  - Diarrhoea [Unknown]
  - Blood prolactin increased [Unknown]
  - Weight increased [Unknown]
  - Galactorrhoea [Unknown]
  - Menstruation delayed [Unknown]
  - Blood glucose increased [Unknown]
  - Dyslipidaemia [Unknown]
  - White blood cell count decreased [Unknown]
  - Platelet count decreased [Unknown]
  - Epistaxis [Unknown]
  - Vision blurred [Unknown]
  - Ophthalmological examination abnormal [Unknown]
  - Dysuria [Unknown]
  - Urinary incontinence [Unknown]
  - Enuresis [Unknown]
  - Oedema peripheral [Unknown]
  - Peripheral swelling [Unknown]
  - Rash [Unknown]
  - Blood creatine phosphokinase increased [Unknown]
  - Arthralgia [Unknown]
